FAERS Safety Report 14025639 (Version 3)
Quarter: 2018Q1

REPORT INFORMATION
  Report Type: Spontaneous
  Country: US (occurrence: US)
  Receive Date: 20170929
  Receipt Date: 20180125
  Transmission Date: 20180508
  Serious: No
  Sender: FDA-Public Use
  Company Number: US-BIOGEN-2017BI00463003

PATIENT
  Sex: Female

DRUGS (1)
  1. ZINBRYTA [Suspect]
     Active Substance: DACLIZUMAB
     Indication: MULTIPLE SCLEROSIS
     Route: 065
     Dates: start: 20170213

REACTIONS (5)
  - Influenza [Unknown]
  - Memory impairment [Unknown]
  - Amnesia [Unknown]
  - Cognitive disorder [Unknown]
  - Diarrhoea [Unknown]
